FAERS Safety Report 10650818 (Version 2)
Quarter: 2014Q4

REPORT INFORMATION
  Report Type: Report from Study
  Country: AT (occurrence: AT)
  Receive Date: 20141215
  Receipt Date: 20141215
  Transmission Date: 20150529
  Serious: Yes (Hospitalization)
  Sender: FDA-Public Use
  Company Number: AT-009507513-1403AUT010885

PATIENT
  Age: 52 Year
  Sex: Male
  Weight: 99.4 kg

DRUGS (12)
  1. PEMBROLIZUMAB. [Suspect]
     Active Substance: PEMBROLIZUMAB
     Indication: MALIGNANT MELANOMA
     Dosage: 10 MG/KG, Q2W, DOSE 100 (UNIT NOT PROVIDED)
     Route: 042
     Dates: start: 20131010, end: 20140212
  2. PEMBROLIZUMAB. [Suspect]
     Active Substance: PEMBROLIZUMAB
     Dosage: 10 MG/KG, Q2W, DOSE 100 (UNIT NOT PROVIDED)
     Route: 042
     Dates: start: 20140423
  3. CANDESARTAN [Concomitant]
     Active Substance: CANDESARTAN
     Indication: HYPERTENSION
     Dosage: 4 MG, QD
     Route: 048
     Dates: start: 20130727
  4. ELOCON [Concomitant]
     Active Substance: MOMETASONE FUROATE
     Indication: NEURODERMATITIS
     Dosage: QD
     Route: 061
     Dates: start: 20140212
  5. MEXALEN [Concomitant]
     Active Substance: LUBIPROSTONE
     Indication: PAIN PROPHYLAXIS
     Dosage: TOTAL DAILY DOSE 500 MG, PRN
     Route: 048
     Dates: start: 20131023
  6. ULTRABAS [Concomitant]
     Indication: RASH
     Dosage: PRN, FORMULATION: SUSPENTION
     Route: 061
     Dates: start: 20131120
  7. PEMBROLIZUMAB. [Suspect]
     Active Substance: PEMBROLIZUMAB
     Dosage: 10 MG/KG, Q2W, DOSE 100 (UNIT NOT PROVIDED)
     Route: 042
     Dates: start: 20140226, end: 20140226
  8. AMLODIPINE [Concomitant]
     Active Substance: AMLODIPINE BESYLATE
     Indication: HYPERTENSION
     Dosage: 5 MG, QD
     Route: 048
     Dates: start: 20130828
  9. PEMBROLIZUMAB. [Suspect]
     Active Substance: PEMBROLIZUMAB
     Dosage: 10 MG/KG, Q2W, DOSE 200 (UNIT NOT PROVIDED)
     Route: 042
     Dates: start: 20140312, end: 20140409
  10. EXCIPIAL U [Concomitant]
     Active Substance: UREA
     Indication: DRY SKIN
     Dosage: PRN, FORMULATION: SOLUTION
     Route: 061
     Dates: start: 20131120
  11. DEFLAMAT [Concomitant]
     Active Substance: DICLOFENAC SODIUM
     Indication: ARTHRALGIA
     Dosage: QID
     Route: 061
     Dates: start: 20131218
  12. KERATOSIS PLUS TRETINOIN CREME WIDMER [Concomitant]
     Indication: NEURODERMATITIS
     Dosage: QD
     Route: 061
     Dates: start: 20140212

REACTIONS (1)
  - Desmoplastic melanoma [Recovered/Resolved]

NARRATIVE: CASE EVENT DATE: 20140226
